FAERS Safety Report 9085916 (Version 1)
Quarter: 2013Q1

REPORT INFORMATION
  Report Type: Report from Study
  Country: US (occurrence: US)
  Receive Date: 20130130
  Receipt Date: 20130130
  Transmission Date: 20140127
  Serious: No
  Sender: FDA-Public Use
  Company Number: US-ABBOTT-12P-163-0989078-00

PATIENT
  Age: 55 Year
  Sex: Female

DRUGS (6)
  1. HUMIRA [Suspect]
     Indication: CROHN^S DISEASE
     Route: 058
     Dates: start: 20120806
  2. AZATHIOPRINE [Concomitant]
     Indication: CROHN^S DISEASE
     Dosage: DAILY
  3. FOLIC ACID [Concomitant]
     Indication: CROHN^S DISEASE
     Dosage: DAILY
  4. ASACOL [Concomitant]
     Indication: CROHN^S DISEASE
  5. FERROUS [Concomitant]
     Indication: BLOOD IRON DECREASED
     Dosage: DAILY
  6. HYDROCHLORTHIAZID [Concomitant]
     Indication: HYPERTENSION
     Dosage: DAILY

REACTIONS (1)
  - Injection site bruising [Recovered/Resolved]
